FAERS Safety Report 8783487 (Version 2)
Quarter: 2012Q4

REPORT INFORMATION
  Report Type: 
  Country: CN (occurrence: CN)
  Receive Date: 20120913
  Receipt Date: 20120923
  Transmission Date: 20130627
  Serious: Yes (Hospitalization)
  Sender: FDA-Public Use
  Company Number: CN-ABBOTT-12P-035-0978856-00

PATIENT
  Age: 84 Year
  Sex: Male

DRUGS (4)
  1. DEPAKINE [Suspect]
     Indication: EPILEPSY
     Route: 048
     Dates: start: 20110731, end: 20110825
  2. DEPAKINE [Suspect]
     Route: 065
     Dates: start: 20110526
  3. CLONAZEPAM [Concomitant]
     Indication: PRODUCT USED FOR UNKNOWN INDICATION
     Dates: start: 20110526
  4. SERTRALINE [Concomitant]
     Indication: PRODUCT USED FOR UNKNOWN INDICATION
     Dates: end: 20110825

REACTIONS (6)
  - White blood cell count increased [Unknown]
  - Dermatitis [Recovered/Resolved]
  - Erythema [Unknown]
  - Body temperature increased [Unknown]
  - Rash macular [Unknown]
  - Swelling [Unknown]
